FAERS Safety Report 14269476 (Version 2)
Quarter: 2018Q1

REPORT INFORMATION
  Report Type: Spontaneous
  Country: JP (occurrence: JP)
  Receive Date: 20171211
  Receipt Date: 20180124
  Transmission Date: 20180508
  Serious: Yes (Life-Threatening, Hospitalization, Other)
  Sender: FDA-Public Use
  Company Number: JP-REGENERON PHARMACEUTICALS, INC.-2017-28861

PATIENT

DRUGS (2)
  1. EYLEA [Suspect]
     Active Substance: AFLIBERCEPT
     Indication: AGE-RELATED MACULAR DEGENERATION
     Dosage: 0.05 ML, ONCE
     Route: 031
     Dates: start: 20171127, end: 20171127
  2. CARNACULIN [KALLIDINOGENASE] [Concomitant]
     Indication: RETINAL VASCULAR DISORDER
     Dosage: DAILY DOSE 3 DF
     Route: 048
     Dates: start: 20170616, end: 20171202

REACTIONS (6)
  - Vomiting [Unknown]
  - Cerebral haemorrhage [Unknown]
  - Thalamus haemorrhage [Not Recovered/Not Resolved]
  - Depressed level of consciousness [Unknown]
  - Loss of consciousness [Unknown]
  - Hemiplegia [Unknown]

NARRATIVE: CASE EVENT DATE: 20171202
